FAERS Safety Report 24336173 (Version 1)
Quarter: 2024Q3

REPORT INFORMATION
  Report Type: Report from Study
  Country: ID (occurrence: ID)
  Receive Date: 20240919
  Receipt Date: 20240919
  Transmission Date: 20241017
  Serious: No
  Sender: ROCHE
  Company Number: ID-ROCHE-3427351

PATIENT
  Age: 64 Year
  Sex: Female

DRUGS (16)
  1. OSELTAMIVIR [Suspect]
     Active Substance: OSELTAMIVIR
     Indication: COVID-19
     Route: 065
  2. VITAMIN D3 [Concomitant]
     Active Substance: CHOLECALCIFEROL
  3. SUKRALFAT [Concomitant]
  4. ZINC [Concomitant]
     Active Substance: ZINC
  5. VITAMIN C [Concomitant]
     Active Substance: ASCORBIC ACID
  6. DOMPERIDONE [Concomitant]
     Active Substance: DOMPERIDONE
  7. LEVOFLOKSASIN [Concomitant]
  8. DEXAMETHASONE [Concomitant]
     Active Substance: DEXAMETHASONE
  9. REBAMIPIDE [Concomitant]
     Active Substance: REBAMIPIDE
  10. PANTOPRAZOLE [Concomitant]
     Active Substance: PANTOPRAZOLE
  11. CLOBAZAM [Concomitant]
     Active Substance: CLOBAZAM
  12. HEPARIN [Concomitant]
     Active Substance: HEPARIN SODIUM
  13. FUROSEMIDE [Concomitant]
     Active Substance: FUROSEMIDE
  14. XARELTO [Concomitant]
     Active Substance: RIVAROXABAN
  15. SYMBICORT [Concomitant]
     Active Substance: BUDESONIDE\FORMOTEROL FUMARATE DIHYDRATE
  16. LAXADINE [Concomitant]

REACTIONS (4)
  - Off label use [Unknown]
  - Insomnia [Unknown]
  - Aspartate aminotransferase increased [Unknown]
  - Pain [Unknown]
